FAERS Safety Report 13711080 (Version 1)
Quarter: 2017Q3

REPORT INFORMATION
  Report Type: Spontaneous
  Country: US (occurrence: US)
  Receive Date: 20170701
  Receipt Date: 20170701
  Transmission Date: 20171127
  Serious: Yes (Disabling)
  Sender: FDA-Public Use
  Company Number: None

PATIENT
  Age: 37 Year
  Sex: Female
  Weight: 99 kg

DRUGS (2)
  1. CLONAZEPAM. [Suspect]
     Active Substance: CLONAZEPAM
     Indication: ANXIETY
     Dosage: ?          QUANTITY:1 TABLET(S);?
     Route: 048
     Dates: start: 20061001, end: 20130510
  2. CLONAZEPAM. [Suspect]
     Active Substance: CLONAZEPAM
     Indication: STRESS AT WORK
     Dosage: ?          QUANTITY:1 TABLET(S);?
     Route: 048
     Dates: start: 20061001, end: 20130510

REACTIONS (24)
  - Myalgia [None]
  - Neuralgia [None]
  - Fatigue [None]
  - General physical health deterioration [None]
  - Asthenia [None]
  - Memory impairment [None]
  - Drug withdrawal syndrome [None]
  - Cognitive disorder [None]
  - Nausea [None]
  - Dementia [None]
  - Impaired work ability [None]
  - Cough [None]
  - Depression [None]
  - Anxiety [None]
  - Impaired driving ability [None]
  - Temperature intolerance [None]
  - Disorientation [None]
  - Paraesthesia [None]
  - Bedridden [None]
  - Insomnia [None]
  - Akathisia [None]
  - Confusional state [None]
  - Suicidal behaviour [None]
  - Weight increased [None]

NARRATIVE: CASE EVENT DATE: 20130510
